FAERS Safety Report 7593563-9 (Version None)
Quarter: 2011Q2

REPORT INFORMATION
  Report Type: 
  Country: None (occurrence: None)
  Receive Date: 20110628
  Receipt Date: 20110617
  Transmission Date: 20111010
  Serious: Yes (Disabling)
  Sender: FDA-Public Use
  Company Number: 959416

PATIENT
  Age: 75 Year
  Sex: Male

DRUGS (5)
  1. ONDANSETRON [Concomitant]
  2. FLUOROURACIL [Suspect]
     Indication: PRODUCT USED FOR UNKNOWN INDICATION
  3. DEXAMETHASONE [Concomitant]
  4. IRINOTECAN HCL [Suspect]
     Indication: PRODUCT USED FOR UNKNOWN INDICATION
     Dosage: 260 MG MILLIGRAM(S), INTRAVENOUS
     Route: 042
     Dates: start: 20100120, end: 20110511
  5. ASPIRIN [Concomitant]

REACTIONS (1)
  - PULMONARY FIBROSIS [None]
